FAERS Safety Report 16955482 (Version 4)
Quarter: 2023Q4

REPORT INFORMATION
  Report Type: Spontaneous
  Country: ES (occurrence: ES)
  Receive Date: 20191024
  Receipt Date: 20231027
  Transmission Date: 20240110
  Serious: Yes (Other)
  Sender: FDA-Public Use
  Company Number: None

PATIENT
  Age: 69 Year
  Sex: Male
  Weight: 85 kg

DRUGS (10)
  1. ENALAPRIL [Interacting]
     Active Substance: ENALAPRIL
     Indication: Hypertension
     Dosage: 1 TABLET (IF TA GREATER THAN 150/95) ORAL EVERY 24 HOURS (9H)
     Route: 048
     Dates: start: 20190912
  2. ENALAPRIL [Interacting]
     Active Substance: ENALAPRIL
     Dosage: 20 MILLIGRAM DAILY; 1 EVERY 24 HOURS. 1-0-0
     Route: 048
     Dates: start: 201906, end: 20190911
  3. NITROGLYCERIN [Interacting]
     Active Substance: NITROGLYCERIN
     Indication: Anal sphincter hypertonia
     Dosage: 2 DOSAGE FORMS DAILY; 1 APPLICATION EVERY 12 HOURS
     Route: 054
     Dates: start: 20190916, end: 20190917
  4. ACETAMINOPHEN [Concomitant]
     Active Substance: ACETAMINOPHEN
     Indication: Product used for unknown indication
     Dosage: 100 ML
     Route: 042
  5. DIAZEPAM [Concomitant]
     Active Substance: DIAZEPAM
     Indication: Product used for unknown indication
     Dosage: 5 MILLIGRAM DAILY; 5 MG ORAL BEFORE BEDTIME (23H)
     Route: 048
  6. ENOXAPARIN SODIUM [Concomitant]
     Active Substance: ENOXAPARIN SODIUM
     Indication: Product used for unknown indication
     Dosage: FORM STRENGTH : 4,000 IU (40 MG)/0.4 ML
     Route: 058
  7. METAMIZOLE [Concomitant]
     Active Substance: METAMIZOLE
     Indication: Product used for unknown indication
     Dosage: 5 ML
     Route: 042
  8. MINERAL OIL [Concomitant]
     Active Substance: MINERAL OIL
     Indication: Product used for unknown indication
     Dosage: PARAFINA LIQUIDA (2092A)
     Route: 048
  9. IBUPROFEN [Concomitant]
     Active Substance: IBUPROFEN
     Indication: Product used for unknown indication
     Route: 048
  10. OMEPRAZOLE [Concomitant]
     Active Substance: OMEPRAZOLE
     Indication: Product used for unknown indication
     Route: 048

REACTIONS (3)
  - Fall [Recovering/Resolving]
  - Hypotension [Recovering/Resolving]
  - Drug interaction [Unknown]

NARRATIVE: CASE EVENT DATE: 20190917
